FAERS Safety Report 15958102 (Version 1)
Quarter: 2019Q1

REPORT INFORMATION
  Report Type: Spontaneous
  Country: IN (occurrence: IN)
  Receive Date: 20190213
  Receipt Date: 20190213
  Transmission Date: 20190417
  Serious: Yes (Other)
  Sender: FDA-Public Use
  Company Number: IN-BAYER-2019-026411

PATIENT
  Age: 26 Year
  Sex: Female

DRUGS (1)
  1. SORAFENIB (RAF KINASE INHIBITOR) [Suspect]
     Active Substance: SORAFENIB
     Indication: MALIGNANT MELANOMA

REACTIONS (3)
  - Toxicity to various agents [None]
  - Off label use [None]
  - Product use in unapproved indication [None]
